FAERS Safety Report 14095976 (Version 3)
Quarter: 2017Q4

REPORT INFORMATION
  Report Type: Spontaneous
  Country: TR (occurrence: TR)
  Receive Date: 20171016
  Receipt Date: 20171213
  Transmission Date: 20180321
  Serious: Yes (Other)
  Sender: FDA-Public Use
  Company Number: TR-GILEAD-2017-0298838

PATIENT
  Age: 40 Year
  Sex: Male

DRUGS (1)
  1. STRIBILD [Suspect]
     Active Substance: COBICISTAT\ELVITEGRAVIR\EMTRICITABINE\TENOFOVIR DISOPROXIL FUMARATE
     Indication: HIV INFECTION
     Dosage: 1X1
     Route: 048
     Dates: start: 20150701

REACTIONS (3)
  - Opportunistic infection [Recovered/Resolved]
  - Drug ineffective [Not Recovered/Not Resolved]
  - Viral load increased [Recovering/Resolving]

NARRATIVE: CASE EVENT DATE: 2017
